FAERS Safety Report 4597833-8 (Version None)
Quarter: 2005Q1

REPORT INFORMATION
  Report Type: 
  Country: None (occurrence: None)
  Receive Date: 20050125
  Receipt Date: 20041105
  Transmission Date: 20050727
  Serious: No
  Sender: FDA-Public Use
  Company Number: USA030126653

PATIENT
  Age: 69 Year
  Sex: Female
  Weight: 40 kg

DRUGS (6)
  1. FORTEO [Suspect]
     Indication: OSTEOPOROSIS
     Dosage: 20 UG DAY
     Dates: start: 20030117, end: 20040901
  2. ALPRAZOLAM [Concomitant]
  3. FOLIC ACID [Concomitant]
  4. METHOTREXATE [Concomitant]
  5. REMICADE [Concomitant]
  6. HYDROCODONE BITARTRATE [Concomitant]

REACTIONS (19)
  - ABDOMINAL PAIN UPPER [None]
  - ACCIDENTAL NEEDLE STICK [None]
  - ARTHRALGIA [None]
  - ASTHENIA [None]
  - BACK PAIN [None]
  - BONE PAIN [None]
  - CHEST PAIN [None]
  - FATIGUE [None]
  - FEELING ABNORMAL [None]
  - INJECTION [None]
  - INJECTION SITE HAEMORRHAGE [None]
  - INJECTION SITE MASS [None]
  - INJECTION SITE PAIN [None]
  - MUSCLE SPASMS [None]
  - MUSCULAR WEAKNESS [None]
  - NERVOUSNESS [None]
  - ORAL MUCOSAL BLISTERING [None]
  - PALPITATIONS [None]
  - RHEUMATOID ARTHRITIS [None]
